FAERS Safety Report 8505606-6 (Version None)
Quarter: 2012Q3

REPORT INFORMATION
  Report Type: 
  Country: None (occurrence: None)
  Receive Date: 20120712
  Receipt Date: 20120705
  Transmission Date: 20120928
  Serious: Yes (Hospitalization)
  Sender: FDA-Public Use
  Company Number: JP-EISAI INC-E7389-02585-CLI-JP

PATIENT
  Sex: Male
  Weight: 60 kg

DRUGS (17)
  1. EPIRUBICIN HYDROCHLORIDE [Suspect]
     Indication: NON-SMALL CELL LUNG CANCER
     Route: 041
     Dates: start: 20120321, end: 20120530
  2. DEXAMETHASONE SODIUM PHOSPHATE [Suspect]
     Route: 041
     Dates: start: 20120321, end: 20120530
  3. TRANSAMINE CAP [Suspect]
     Route: 048
     Dates: start: 20110706
  4. STICKZENOL [Concomitant]
     Dates: start: 20120417
  5. SELTOUCH [Concomitant]
     Indication: COMPRESSION FRACTURE
  6. FAMOTIDINE [Concomitant]
     Indication: PROPHYLAXIS
     Route: 048
     Dates: start: 20120203
  7. ADONA [Suspect]
     Route: 048
     Dates: start: 20110706
  8. VALTREX [Suspect]
     Indication: HERPES ZOSTER
     Route: 048
     Dates: start: 20120612
  9. NAPROXEN [Concomitant]
     Indication: TUMOUR ASSOCIATED FEVER
     Route: 048
     Dates: start: 20120203
  10. ARSENA-A [Concomitant]
     Indication: HERPES ZOSTER
     Dates: start: 20120612
  11. TRAMADOL HYDROCHLORIDE/ACETAMINOPHEN [Concomitant]
     Route: 048
     Dates: start: 20120328
  12. HUSTAZOL [Concomitant]
     Indication: COUGH
     Route: 048
     Dates: start: 20120529
  13. SELTOUCH [Concomitant]
     Dates: start: 20110806
  14. STICKZENOL [Concomitant]
     Indication: COMPRESSION FRACTURE
  15. POSTERISAN [Concomitant]
     Indication: HAEMORRHOIDS
  16. POSTERISAN [Concomitant]
     Indication: COMPRESSION FRACTURE
  17. MAGMITT [Concomitant]
     Indication: CONSTIPATION
     Route: 048
     Dates: start: 20110408

REACTIONS (2)
  - CEREBRAL INFARCTION [None]
  - HAEMOPTYSIS [None]
